FAERS Safety Report 5159018-6 (Version None)
Quarter: 2006Q4

REPORT INFORMATION
  Report Type: 
  Country: None (occurrence: None)
  Receive Date: 20061117
  Receipt Date: 20061108
  Transmission Date: 20070319
  Serious: Yes (Other)
  Sender: FDA-Public Use
  Company Number: SPVI-2006-01570

PATIENT
  Age: 6 Year
  Sex: Male
  Weight: 19.5 kg

DRUGS (5)
  1. DAYTRANA [Suspect]
     Indication: ATTENTION DEFICIT/HYPERACTIVITY DISORDER
     Dosage: TWO 30-MG PATCHES, TRANSDERMAL
     Route: 062
     Dates: start: 20060901
  2. ZYPREXA [Suspect]
     Indication: BIPOLAR DISORDER
     Dosage: 7.5 MG, DAILY,; 30 MG, TRANSDERMAL
     Route: 062
     Dates: start: 20060917, end: 20060901
  3. ZYPREXA [Suspect]
     Indication: BIPOLAR DISORDER
     Dosage: 7.5 MG, DAILY,; 30 MG, TRANSDERMAL
     Route: 062
     Dates: start: 20061004, end: 20061101
  4. FOCALIN (DEXMETHYLPHENIDATED HYDROCHLORIDE) [Concomitant]
  5. RITALIN LA (METHYLPHENIDATED HYDROCHLORIDE) [Concomitant]

REACTIONS (5)
  - DYSTONIA [None]
  - HOT FLUSH [None]
  - PARKINSONISM [None]
  - PRESCRIBED OVERDOSE [None]
  - VOMITING [None]
